FAERS Safety Report 8359973-7 (Version None)
Quarter: 2012Q2

REPORT INFORMATION
  Report Type: 
  Country: None (occurrence: None)
  Receive Date: 20120515
  Receipt Date: 20120503
  Transmission Date: 20120825
  Serious: Yes (Other)
  Sender: FDA-Public Use
  Company Number: US-JNJFOC-20120400401

PATIENT
  Sex: Female
  Weight: 60.33 kg

DRUGS (5)
  1. REMICADE [Suspect]
     Indication: RHEUMATOID ARTHRITIS
     Dosage: DOSE: 200 MG.
     Route: 042
     Dates: start: 20050502
  2. METHYLCELLULOSE [Concomitant]
  3. MULTI-VITAMIN [Concomitant]
     Route: 065
  4. LABETALOL HCL [Concomitant]
     Indication: HYPERTENSION
     Route: 065
  5. FOLIC ACID [Concomitant]
     Route: 065

REACTIONS (2)
  - MATERNAL EXPOSURE DURING PREGNANCY [None]
  - ABORTION SPONTANEOUS [None]
